FAERS Safety Report 23322133 (Version 3)
Quarter: 2024Q1

REPORT INFORMATION
  Report Type: Spontaneous
  Country: JP (occurrence: JP)
  Receive Date: 20231220
  Receipt Date: 20240215
  Transmission Date: 20240409
  Serious: Yes (Other)
  Sender: FDA-Public Use
  Company Number: JP-PFIZER INC-PV202300202931

PATIENT
  Age: 21 Year
  Sex: Male
  Weight: 83 kg

DRUGS (2)
  1. AZITHROMYCIN DIHYDRATE [Suspect]
     Active Substance: AZITHROMYCIN DIHYDRATE
     Dosage: 500 MG, 1X/DAY
     Route: 048
     Dates: start: 20231201, end: 20231203
  2. LOXOPROFEN SODIUM [Concomitant]
     Active Substance: LOXOPROFEN SODIUM
     Dosage: 60 MG X 1 TIME ONLY, AS NEEDED
     Route: 048
     Dates: start: 20231201, end: 20231201

REACTIONS (11)
  - Rhabdomyolysis [Recovered/Resolved]
  - Toxic skin eruption [Recovered/Resolved]
  - Blood creatine phosphokinase increased [Unknown]
  - Rash [Unknown]
  - Aspartate aminotransferase increased [Recovering/Resolving]
  - Alanine aminotransferase increased [Not Recovered/Not Resolved]
  - Blood lactate dehydrogenase increased [Recovered/Resolved]
  - Myalgia [Recovered/Resolved]
  - Influenza [Unknown]
  - Gamma-glutamyltransferase increased [Not Recovered/Not Resolved]
  - Non-alcoholic fatty liver [Unknown]

NARRATIVE: CASE EVENT DATE: 20231208
